FAERS Safety Report 4503063-8 (Version None)
Quarter: 2004Q4

REPORT INFORMATION
  Report Type: 
  Country: None (occurrence: None)
  Receive Date: 20041116
  Receipt Date: 20041116
  Transmission Date: 20050328
  Serious: Yes (Other)
  Sender: FDA-Public Use
  Company Number: None

PATIENT
  Age: 44 Year
  Sex: Male
  Weight: 83.9154 kg

DRUGS (1)
  1. PROZAC [Suspect]
     Dosage: 1 Q AM PO
     Route: 048

REACTIONS (1)
  - DRUG HYPERSENSITIVITY [None]
